FAERS Safety Report 24777568 (Version 6)
Quarter: 2025Q1

REPORT INFORMATION
  Report Type: Spontaneous
  Country: CA (occurrence: CA)
  Receive Date: 20241226
  Receipt Date: 20250226
  Transmission Date: 20250409
  Serious: No
  Sender: PFIZER
  Company Number: CA-PFIZER INC-202400218827

PATIENT
  Age: 47 Year
  Sex: Male

DRUGS (3)
  1. ABRILADA [Suspect]
     Active Substance: ADALIMUMAB-AFZB
     Indication: Hidradenitis
     Route: 058
     Dates: start: 20240602, end: 2024
  2. ABRILADA [Suspect]
     Active Substance: ADALIMUMAB-AFZB
     Dosage: 160 MG WEEK 0, 80 MG WEEK 2, THE 40 MG WEEKLY STARTING WEEK 4
     Route: 058
     Dates: start: 2024
  3. ABRILADA [Suspect]
     Active Substance: ADALIMUMAB-AFZB
     Dosage: INCORRECT DOSE ADMINISTERED
     Route: 058
     Dates: start: 2024, end: 2024

REACTIONS (9)
  - Drug ineffective [Unknown]
  - Testicular pain [Not Recovered/Not Resolved]
  - Condition aggravated [Recovering/Resolving]
  - Pain [Unknown]
  - Off label use [Unknown]
  - Device defective [Unknown]
  - Needle issue [Unknown]
  - Incorrect dose administered by device [Unknown]
  - Device breakage [Unknown]

NARRATIVE: CASE EVENT DATE: 20240101
